FAERS Safety Report 9733394 (Version 1)
Quarter: 2013Q4

REPORT INFORMATION
  Report Type: Spontaneous
  Country: JP (occurrence: JP)
  Receive Date: 20131205
  Receipt Date: 20131205
  Transmission Date: 20140711
  Serious: Yes (Hospitalization)
  Sender: FDA-Public Use
  Company Number: JP-GLAXOSMITHKLINE-A1051686A

PATIENT
  Age: 65 Year
  Sex: Male

DRUGS (3)
  1. NICORETTE 2 MG [Suspect]
     Indication: SMOKING CESSATION THERAPY
     Dosage: 2MG SEE DOSAGE TEXT
     Route: 048
     Dates: start: 2003
  2. NICORETTE 2 MG [Suspect]
     Indication: SMOKING CESSATION THERAPY
     Dosage: 2MG SEE DOSAGE TEXT
     Route: 048
  3. NICORETTE 2 MG [Suspect]
     Indication: SMOKING CESSATION THERAPY
     Dosage: 2MG SEE DOSAGE TEXT
     Route: 048

REACTIONS (12)
  - Cerebral infarction [Unknown]
  - Intentional drug misuse [Unknown]
  - Musculoskeletal stiffness [Unknown]
  - Local swelling [Recovering/Resolving]
  - Abdominal pain upper [Unknown]
  - Insomnia [Unknown]
  - Feeling cold [Unknown]
  - Fatigue [Unknown]
  - Eyelid oedema [Unknown]
  - Rash [Unknown]
  - Drug administration error [Unknown]
  - Diabetes mellitus [Unknown]
